FAERS Safety Report 7639248-1 (Version None)
Quarter: 2011Q3

REPORT INFORMATION
  Report Type: 
  Country: None (occurrence: None)
  Receive Date: 20110727
  Receipt Date: 20110714
  Transmission Date: 20111222
  Serious: Yes (Hospitalization, Disabling)
  Sender: FDA-Public Use
  Company Number: NO-MERCK-1107USA01874

PATIENT
  Age: 42 Year
  Sex: Female

DRUGS (10)
  1. DESOGESTREL AND ETHINYL ESTRADIOL [Suspect]
     Indication: CONTRACEPTION
     Route: 048
     Dates: start: 20070206, end: 20080301
  2. TOILAX [Concomitant]
     Route: 065
  3. TRIPHASIL-21 [Concomitant]
     Route: 065
  4. ZOCOR [Suspect]
     Route: 048
  5. DUPHALAC [Concomitant]
     Route: 065
     Dates: start: 20080314
  6. TRIMETHOPRIM [Concomitant]
     Route: 065
  7. ZOCOR [Suspect]
     Route: 048
     Dates: start: 20080301
  8. PERSANTIN [Concomitant]
     Route: 065
     Dates: start: 20080301
  9. ACETAMINOPHEN [Concomitant]
     Route: 065
  10. ASPIRIN [Concomitant]
     Route: 065
     Dates: start: 20080301

REACTIONS (8)
  - PANIC DISORDER WITH AGORAPHOBIA [None]
  - HYPERVENTILATION [None]
  - MUSCLE SPASMS [None]
  - ANXIETY [None]
  - DEPRESSION [None]
  - MYOPATHY [None]
  - PAIN [None]
  - OVARIAN CYST [None]
